FAERS Safety Report 22352999 (Version 3)
Quarter: 2024Q4

REPORT INFORMATION
  Report Type: Report from Study
  Country: SE (occurrence: SE)
  Receive Date: 20230523
  Receipt Date: 20241113
  Transmission Date: 20250115
  Serious: Yes (Death, Other)
  Sender: JOHNSON AND JOHNSON
  Company Number: SE-ACTELION-A-CH2019-194752

PATIENT
  Age: 84 Year
  Sex: Male
  Weight: 85 kg

DRUGS (19)
  1. OPSUMIT [Suspect]
     Active Substance: MACITENTAN
     Indication: Pulmonary arterial hypertension
     Dosage: 10 MG, QD
     Route: 048
     Dates: start: 20190314, end: 20190905
  2. UPTRAVI [Suspect]
     Active Substance: SELEXIPAG
     Indication: Pulmonary arterial hypertension
     Dosage: 1600 MCG, QD
     Route: 048
     Dates: start: 20190515, end: 20190605
  3. UPTRAVI [Suspect]
     Active Substance: SELEXIPAG
     Dosage: 400 MCG, QD
     Route: 048
     Dates: start: 20190314, end: 20190408
  4. UPTRAVI [Suspect]
     Active Substance: SELEXIPAG
     Dosage: 800 MCG, QD
     Route: 048
     Dates: start: 20190408, end: 20190415
  5. UPTRAVI [Suspect]
     Active Substance: SELEXIPAG
     Dosage: 1200 MCG, QD
     Route: 048
     Dates: start: 20190416, end: 20190515
  6. UPTRAVI [Suspect]
     Active Substance: SELEXIPAG
     Dosage: 2000 MCG, QD
     Route: 048
     Dates: start: 20190605, end: 20190905
  7. ADCIRCA [Concomitant]
     Active Substance: TADALAFIL
     Indication: Pulmonary arterial hypertension
     Dosage: 40 MG, QD
     Route: 048
     Dates: start: 20190314
  8. ADCIRCA [Concomitant]
     Active Substance: TADALAFIL
     Indication: Pulmonary arterial hypertension
     Dosage: 40 MG, QD
     Route: 065
     Dates: start: 20181030
  9. METOKLOPRAMID [METOCLOPRAMIDE] [Concomitant]
     Dosage: UNK
     Route: 048
     Dates: start: 20190315
  10. ACETAMINOPHEN [Concomitant]
     Active Substance: ACETAMINOPHEN
     Indication: Pain
     Dosage: UNK
     Route: 048
     Dates: start: 20190315
  11. ACETAMINOPHEN [Concomitant]
     Active Substance: ACETAMINOPHEN
     Dosage: UNK
     Route: 048
     Dates: start: 20180524
  12. ATORVASTATIN [Concomitant]
     Active Substance: ATORVASTATIN
     Indication: Hyperlipidaemia
     Dosage: UNK
     Route: 048
  13. SPIRONOLACTONE [Concomitant]
     Active Substance: SPIRONOLACTONE
     Indication: Diuretic therapy
     Dosage: UNK
     Route: 048
  14. FUROSEMIDE [Concomitant]
     Active Substance: FUROSEMIDE
     Indication: Diuretic therapy
     Dosage: UNK
     Route: 048
  15. FUROSEMIDE [Concomitant]
     Active Substance: FUROSEMIDE
     Indication: Diuretic therapy
     Dosage: UNK
     Route: 048
     Dates: start: 20101112
  16. FUROSEMIDE [Concomitant]
     Active Substance: FUROSEMIDE
     Indication: Fluid retention
     Route: 042
  17. ASPIRIN [Concomitant]
     Active Substance: ASPIRIN
     Indication: Anticoagulant therapy
     Dosage: UNK
     Route: 048
  18. INSULIN GLARGINE [Concomitant]
     Active Substance: INSULIN GLARGINE
     Dosage: UNK
     Route: 058
  19. OXYGEN [Concomitant]
     Active Substance: OXYGEN
     Indication: Oxygen saturation decreased
     Dosage: UNK
     Route: 055
     Dates: start: 201902

REACTIONS (7)
  - Death [Fatal]
  - Renal impairment [Unknown]
  - Haemoglobin decreased [Unknown]
  - Folate deficiency [Unknown]
  - Anaemia [Not Recovered/Not Resolved]
  - Chest pain [Unknown]
  - Concomitant disease aggravated [Unknown]

NARRATIVE: CASE EVENT DATE: 20190603
